FAERS Safety Report 5914642-5 (Version None)
Quarter: 2008Q4

REPORT INFORMATION
  Report Type: 
  Country: None (occurrence: None)
  Receive Date: 20081010
  Receipt Date: 20081003
  Transmission Date: 20090506
  Serious: Yes (Hospitalization)
  Sender: FDA-Public Use
  Company Number: DE-WYE-G02289408

PATIENT
  Sex: Female
  Weight: 70 kg

DRUGS (4)
  1. LORAZEPAM [Suspect]
     Dosage: UNKNOWN
     Route: 048
     Dates: start: 20081002, end: 20081002
  2. ALCOHOL [Suspect]
     Dosage: UNKNOWN
     Route: 048
     Dates: start: 20081002, end: 20081002
  3. TRUXAL [Suspect]
     Dosage: UNKNOWN
     Route: 048
     Dates: start: 20081002, end: 20081002
  4. TREVILOR [Suspect]
     Dosage: UNKNOWN
     Route: 048
     Dates: start: 20081002, end: 20081002

REACTIONS (5)
  - GASTROINTESTINAL SOUNDS ABNORMAL [None]
  - HYPOTENSION [None]
  - INTENTIONAL OVERDOSE [None]
  - SOPOR [None]
  - SUICIDE ATTEMPT [None]
